FAERS Safety Report 5960163-3 (Version None)
Quarter: 2008Q4

REPORT INFORMATION
  Report Type: 
  Country: None (occurrence: None)
  Receive Date: 20081120
  Receipt Date: 20081111
  Transmission Date: 20090506
  Serious: Yes (Other)
  Sender: FDA-Public Use
  Company Number: US-ELI_LILLY_AND_COMPANY-US200808006253

PATIENT
  Sex: Male
  Weight: 125.62 kg

DRUGS (8)
  1. BYETTA [Suspect]
     Indication: TYPE 2 DIABETES MELLITUS
     Dosage: 5 UG, 2/D
     Dates: start: 20061101, end: 20061201
  2. BYETTA [Suspect]
     Dosage: 10 UG, 2/D
     Dates: start: 20061201, end: 20080601
  3. COUMADIN [Concomitant]
  4. HYTRIN [Concomitant]
  5. SYNTHROID [Concomitant]
     Dosage: 175 UG, DAILY (1/D)
     Route: 048
  6. LOVASTATIN [Concomitant]
     Dosage: 40 MG, DAILY (1/D)
     Route: 048
  7. ALLEGRA [Concomitant]
     Dosage: 180 MG, DAILY (1/D)
     Route: 048
  8. SPIRONOLACTONE [Concomitant]
     Dosage: 25 MG, DAILY (1/D)
     Route: 048

REACTIONS (6)
  - FLANK PAIN [None]
  - GASTRITIS [None]
  - GASTROINTESTINAL TRACT MUCOSAL DISCOLOURATION [None]
  - GROIN PAIN [None]
  - PANCREATITIS CHRONIC [None]
  - WEIGHT DECREASED [None]
